FAERS Safety Report 6465664-X (Version None)
Quarter: 2009Q4

REPORT INFORMATION
  Report Type: 
  Country: None (occurrence: None)
  Receive Date: 20091201
  Receipt Date: 20091124
  Transmission Date: 20100525
  Serious: Yes (Death, Hospitalization)
  Sender: FDA-Public Use
  Company Number: US-GILEAD-2009-0025502

PATIENT
  Sex: Male
  Weight: 95.34 kg

DRUGS (13)
  1. LETAIRIS [Suspect]
     Indication: PULMONARY ARTERIAL HYPERTENSION
     Route: 048
     Dates: start: 20080729, end: 20091116
  2. HYTRIN [Concomitant]
  3. AMLODIPINE BESYLATE [Concomitant]
  4. ATENOLOL [Concomitant]
  5. VYTORIN [Concomitant]
  6. ADULT ASPIRIN [Concomitant]
  7. PULMICORT [Concomitant]
  8. ALBUTEROL [Concomitant]
  9. IPRATROPIUM [Concomitant]
  10. PHENYTOIN [Concomitant]
  11. GLUCOPHAGE [Concomitant]
  12. GLIPIZIDE [Concomitant]
  13. LANTUS [Concomitant]

REACTIONS (4)
  - CHRONIC OBSTRUCTIVE PULMONARY DISEASE [None]
  - DEATH [None]
  - LUNG NEOPLASM MALIGNANT [None]
  - PULMONARY EMBOLISM [None]
